FAERS Safety Report 18126635 (Version 2)
Quarter: 2020Q3

REPORT INFORMATION
  Report Type: Report from Study
  Country: PH (occurrence: PH)
  Receive Date: 20200809
  Receipt Date: 20200905
  Transmission Date: 20201103
  Serious: Yes (Death, Hospitalization, Other)
  Sender: FDA-Public Use
  Company Number: NVSC2020PH220244

PATIENT
  Age: 50 Year
  Sex: Female

DRUGS (1)
  1. GLIVEC [Suspect]
     Active Substance: IMATINIB MESYLATE
     Indication: CHRONIC MYELOID LEUKAEMIA
     Dosage: 400 MG (4 X 100MG TABLETS)
     Route: 048
     Dates: start: 20070508

REACTIONS (20)
  - Diabetic foot [Unknown]
  - Abdominal distension [Unknown]
  - Pneumonia [Unknown]
  - Diabetic gastropathy [Unknown]
  - Death [Fatal]
  - Peripheral artery stenosis [Unknown]
  - Feeding disorder [Unknown]
  - Diarrhoea [Unknown]
  - Sepsis [Unknown]
  - Blindness [Unknown]
  - Anaemia [Unknown]
  - Dehydration [Unknown]
  - Nausea [Unknown]
  - Chronic kidney disease [Unknown]
  - Pulmonary oedema [Unknown]
  - Limb injury [Unknown]
  - Vomiting [Unknown]
  - Gastrointestinal disorder [Unknown]
  - Abdominal pain upper [Unknown]
  - Chronic myeloid leukaemia [Unknown]

NARRATIVE: CASE EVENT DATE: 201311
